FAERS Safety Report 4864838-9 (Version None)
Quarter: 2005Q4

REPORT INFORMATION
  Report Type: 
  Country: None (occurrence: None)
  Receive Date: 20051222
  Receipt Date: 20051005
  Transmission Date: 20060501
  Serious: Yes (Death, Hospitalization)
  Sender: FDA-Public Use
  Company Number: US-MERCK-0510USA05372

PATIENT
  Age: 78 Year
  Sex: Female
  Weight: 59 kg

DRUGS (19)
  1. VIOXX [Suspect]
     Indication: ARTHRITIS
     Route: 048
     Dates: start: 20010101
  2. FOSAMAX [Concomitant]
     Route: 065
  3. CALCIUM (UNSPECIFIED) [Concomitant]
     Route: 065
  4. MYSOLINE [Concomitant]
     Route: 065
  5. ZOCOR [Concomitant]
     Route: 065
  6. ATENOLOL [Concomitant]
     Route: 065
  7. NORVASC [Concomitant]
     Route: 065
  8. PLAVIX [Concomitant]
     Route: 065
  9. ASPIRIN [Concomitant]
     Route: 065
  10. ULTRAM [Concomitant]
     Route: 065
  11. TYLENOL [Concomitant]
     Route: 065
  12. AMBIEN [Concomitant]
     Route: 065
  13. PROMETHAZINE [Concomitant]
     Route: 065
  14. LOTENSIN [Concomitant]
     Route: 065
  15. PRIMIDONE [Concomitant]
     Route: 065
  16. MAALOX FAST BLOCKER [Concomitant]
     Route: 065
  17. FUROSEMIDE [Concomitant]
     Route: 065
  18. CYANOCOBALAMIN [Concomitant]
     Route: 065
  19. FLUOCINOLONE ACETONIDE [Concomitant]
     Route: 065

REACTIONS (13)
  - ANGINA UNSTABLE [None]
  - ARTERIOSCLEROSIS [None]
  - ATRIAL FIBRILLATION [None]
  - BRAIN HERNIATION [None]
  - CARDIAC FAILURE CONGESTIVE [None]
  - CARDIO-RESPIRATORY ARREST [None]
  - CEREBROVASCULAR ACCIDENT [None]
  - CORONARY ARTERY DISEASE [None]
  - HYPERTENSION [None]
  - HYPERTENSIVE HEART DISEASE [None]
  - MITRAL VALVE INCOMPETENCE [None]
  - MYOCARDIAL INFARCTION [None]
  - PULMONARY HYPERTENSION [None]
